FAERS Safety Report 24966756 (Version 1)
Quarter: 2025Q1

REPORT INFORMATION
  Report Type: Spontaneous
  Country: US (occurrence: US)
  Receive Date: 20250213
  Receipt Date: 20250213
  Transmission Date: 20250409
  Serious: No
  Sender: PFIZER
  Company Number: US-PFIZER INC-PV202500016504

PATIENT
  Age: 50 Year
  Sex: Female

DRUGS (4)
  1. AZITHROMYCIN [Suspect]
     Active Substance: AZITHROMYCIN
     Indication: Lower respiratory tract infection bacterial
     Route: 048
     Dates: start: 202307
  2. RIFAMPIN [Suspect]
     Active Substance: RIFAMPIN
     Indication: Lower respiratory tract infection bacterial
     Route: 048
     Dates: start: 202307
  3. ETHAMBUTOL [Suspect]
     Active Substance: ETHAMBUTOL HYDROCHLORIDE
     Indication: Lower respiratory tract infection bacterial
     Route: 048
     Dates: start: 202307
  4. AMIKACIN [Concomitant]
     Active Substance: AMIKACIN
     Indication: Lower respiratory tract infection bacterial
     Route: 042
     Dates: start: 202307, end: 2023

REACTIONS (1)
  - Mycobacterium test positive [Unknown]

NARRATIVE: CASE EVENT DATE: 20240601
